FAERS Safety Report 26183226 (Version 1)
Quarter: 2025Q4

REPORT INFORMATION
  Report Type: Spontaneous
  Country: GB (occurrence: GB)
  Receive Date: 20251221
  Receipt Date: 20251221
  Transmission Date: 20260117
  Serious: Yes (Other)
  Sender: AUROBINDO
  Company Number: GB-MHRA-MED-202512081234353690-VJWRS

PATIENT
  Age: 43 Year
  Sex: Male

DRUGS (5)
  1. DULOXETINE [Suspect]
     Active Substance: DULOXETINE
     Indication: Pain
     Dosage: 20 MILLIGRAM, AT BED TIME
     Route: 065
  2. FEXOFENADINE [Concomitant]
     Active Substance: FEXOFENADINE HYDROCHLORIDE
     Indication: Product used for unknown indication
     Dosage: UNK
     Route: 065
  3. TEMAZEPAM [Concomitant]
     Active Substance: TEMAZEPAM
     Indication: Product used for unknown indication
     Dosage: UNK
     Route: 065
  4. ACETAMINOPHEN [Concomitant]
     Active Substance: ACETAMINOPHEN
     Indication: Product used for unknown indication
     Dosage: UNK
     Route: 065
  5. LANSOPRAZOLE [Concomitant]
     Active Substance: LANSOPRAZOLE
     Indication: Product used for unknown indication
     Dosage: UNK
     Route: 065

REACTIONS (6)
  - Brain fog [Unknown]
  - Confusional state [Unknown]
  - Headache [Unknown]
  - Nausea [Unknown]
  - Diarrhoea [Unknown]
  - General physical condition abnormal [Unknown]
